FAERS Safety Report 9824022 (Version 2)
Quarter: 2014Q1

REPORT INFORMATION
  Report Type: Spontaneous
  Country: US (occurrence: US)
  Receive Date: 20140116
  Receipt Date: 20140116
  Transmission Date: 20141002
  Serious: No
  Sender: FDA-Public Use
  Company Number: US-GILEAD-2011-0038458

PATIENT
  Age: 56 Year
  Sex: Female

DRUGS (13)
  1. LETAIRIS [Suspect]
     Indication: PULMONARY HYPERTENSION
     Route: 048
     Dates: start: 20101119, end: 20110404
  2. LETAIRIS [Suspect]
     Indication: CREST SYNDROME
     Route: 048
  3. FLUOXETINE [Concomitant]
  4. ADVAIR [Concomitant]
  5. PLAVIX                             /01220701/ [Concomitant]
  6. PRAVASTATIN [Concomitant]
  7. HYDROCHLOROTHIAZIDE [Concomitant]
  8. COUMADIN                           /00014802/ [Concomitant]
  9. AMBIEN CR [Concomitant]
  10. ALPRAZOLAM [Concomitant]
  11. TYLENOL                            /00020001/ [Concomitant]
  12. FERROUS SULFATE [Concomitant]
  13. OXYGEN [Concomitant]

REACTIONS (2)
  - Liver function test abnormal [Unknown]
  - Dyspnoea [Unknown]
